FAERS Safety Report 13814711 (Version 3)
Quarter: 2017Q3

REPORT INFORMATION
  Report Type: Spontaneous
  Country: JP (occurrence: JP)
  Receive Date: 20170731
  Receipt Date: 20170920
  Transmission Date: 20171127
  Serious: Yes (Other)
  Sender: FDA-Public Use
  Company Number: JP-TEVA-201707_00000386

PATIENT
  Age: 54 Year
  Sex: Female

DRUGS (5)
  1. PREDNISOLONE POWDER 1% [Suspect]
     Active Substance: PREDNISOLONE
     Indication: EYELID OEDEMA
     Dosage: 30 MILLIGRAM DAILY;
     Route: 065
  2. PREDNISOLONE POWDER 1% [Suspect]
     Active Substance: PREDNISOLONE
     Route: 065
  3. PREDNISOLONE POWDER 1% [Suspect]
     Active Substance: PREDNISOLONE
     Dosage: 25 MILLIGRAM DAILY;
     Route: 065
  4. PREDNISOLONE POWDER 1% [Suspect]
     Active Substance: PREDNISOLONE
     Dosage: 5MG AT AN AVERAGE OF 7 TIMES PER MONTH
     Route: 065
     Dates: start: 200612
  5. PREDNISOLONE POWDER 1% [Suspect]
     Active Substance: PREDNISOLONE
     Dosage: 20 MILLIGRAM DAILY;
     Route: 065

REACTIONS (2)
  - Symptom masked [Unknown]
  - Diabetes mellitus [Unknown]
